FAERS Safety Report 21048046 (Version 14)
Quarter: 2025Q1

REPORT INFORMATION
  Report Type: Report from Study
  Country: AU (occurrence: AU)
  Receive Date: 20220706
  Receipt Date: 20250206
  Transmission Date: 20250409
  Serious: Yes (Hospitalization, Other)
  Sender: TAKEDA
  Company Number: AU-TAKEDA-2022TUS044785

PATIENT
  Age: 55 Year
  Sex: Male

DRUGS (10)
  1. VEDOLIZUMAB [Suspect]
     Active Substance: VEDOLIZUMAB
     Indication: Colitis ulcerative
  2. VEDOLIZUMAB [Suspect]
     Active Substance: VEDOLIZUMAB
  3. VEDOLIZUMAB [Suspect]
     Active Substance: VEDOLIZUMAB
  4. VEDOLIZUMAB [Suspect]
     Active Substance: VEDOLIZUMAB
  5. VEDOLIZUMAB [Suspect]
     Active Substance: VEDOLIZUMAB
  6. VEDOLIZUMAB [Suspect]
     Active Substance: VEDOLIZUMAB
  7. VEDOLIZUMAB [Suspect]
     Active Substance: VEDOLIZUMAB
  8. VEDOLIZUMAB [Suspect]
     Active Substance: VEDOLIZUMAB
  9. VEDOLIZUMAB [Suspect]
     Active Substance: VEDOLIZUMAB
  10. VEDOLIZUMAB [Suspect]
     Active Substance: VEDOLIZUMAB

REACTIONS (11)
  - Inguinal hernia [Recovering/Resolving]
  - Haematochezia [Recovered/Resolved]
  - Colitis ulcerative [Recovered/Resolved]
  - Pneumonia [Recovered/Resolved]
  - Illness [Not Recovered/Not Resolved]
  - Inappropriate schedule of product administration [Recovered/Resolved]
  - Food poisoning [Recovered/Resolved]
  - Weight decreased [Recovered/Resolved]
  - Blood cholesterol increased [Recovering/Resolving]
  - Influenza [Recovered/Resolved]
  - COVID-19 [Recovered/Resolved]

NARRATIVE: CASE EVENT DATE: 20220620
